FAERS Safety Report 16976762 (Version 3)
Quarter: 2019Q4

REPORT INFORMATION
  Report Type: Report from Study
  Country: None (occurrence: US)
  Receive Date: 20191030
  Receipt Date: 20191230
  Transmission Date: 20200122
  Serious: Yes (Hospitalization)
  Sender: FDA-Public Use
  Company Number: US-ABBVIE-19P-163-2975256-00

PATIENT
  Age: 66 Year
  Sex: Female
  Weight: 38.8 kg

DRUGS (9)
  1. NYSTATIN. [Concomitant]
     Active Substance: NYSTATIN
     Indication: CHRONIC GRAFT VERSUS HOST DISEASE
     Route: 048
     Dates: start: 20180918
  2. DEXAMETHASONE. [Concomitant]
     Active Substance: DEXAMETHASONE
     Indication: CHRONIC GRAFT VERSUS HOST DISEASE
     Route: 061
     Dates: start: 20170922, end: 20191117
  3. VENETOCLAX. [Suspect]
     Active Substance: VENETOCLAX
     Indication: ACUTE MYELOID LEUKAEMIA
     Dosage: DAYS 2-28 DURING CYCLE 1, DAYS 1-18 CYCLE 2 AND BEYOND
     Route: 048
     Dates: start: 20191012, end: 20191021
  4. GILTERITINIB [Suspect]
     Active Substance: GILTERITINIB
     Route: 048
     Dates: start: 20191024
  5. LEVOFLOXACIN. [Concomitant]
     Active Substance: LEVOFLOXACIN
     Indication: ANTIBIOTIC PROPHYLAXIS
     Route: 048
     Dates: start: 20191015
  6. VENETOCLAX. [Suspect]
     Active Substance: VENETOCLAX
     Dosage: DAYS 2-28 DURING CYCLE 1, DAYS 1-18 CYCLE 2 AND BEYOND
     Route: 048
     Dates: start: 20191024
  7. CYTARABINE. [Concomitant]
     Active Substance: CYTARABINE
     Indication: PRODUCT USED FOR UNKNOWN INDICATION
     Route: 037
  8. OMEPRAZOLE. [Concomitant]
     Active Substance: OMEPRAZOLE
     Indication: GASTROOESOPHAGEAL REFLUX DISEASE
     Route: 048
     Dates: start: 20170418
  9. GILTERITINIB [Suspect]
     Active Substance: GILTERITINIB
     Indication: ACUTE MYELOID LEUKAEMIA
     Route: 048
     Dates: start: 20191011, end: 20191021

REACTIONS (1)
  - Inappropriate antidiuretic hormone secretion [Recovered/Resolved]

NARRATIVE: CASE EVENT DATE: 20191021
